FAERS Safety Report 9060098 (Version 1)
Quarter: 2013Q1

REPORT INFORMATION
  Report Type: Spontaneous
  Country: FR (occurrence: FR)
  Receive Date: 20130212
  Receipt Date: 20130212
  Transmission Date: 20140127
  Serious: Yes (Death)
  Sender: FDA-Public Use
  Company Number: FR-CELGENEUS-056-21880-13020539

PATIENT
  Age: 72 Year
  Sex: Female

DRUGS (16)
  1. REVLIMID [Suspect]
     Indication: PLASMA CELL MYELOMA
     Dosage: 15 MILLIGRAM
     Route: 048
     Dates: start: 200911
  2. REVLIMID [Suspect]
     Dosage: 10 MILLIGRAM
     Route: 048
     Dates: start: 200912, end: 20100110
  3. REVLIMID [Suspect]
     Dosage: 15 MILLIGRAM
     Route: 048
     Dates: start: 20100126
  4. REVLIMID [Suspect]
     Dosage: 15 MILLIGRAM
     Route: 048
     Dates: start: 201003
  5. REVLIMID [Suspect]
     Dosage: 10 MILLIGRAM
     Route: 048
     Dates: start: 201005
  6. REVLIMID [Suspect]
     Dosage: 5 MILLIGRAM
     Route: 048
     Dates: start: 201008
  7. REVLIMID [Suspect]
     Dosage: 15 MILLIGRAM
     Route: 048
     Dates: start: 201010
  8. REVLIMID [Suspect]
     Route: 048
     Dates: start: 201011, end: 201101
  9. DEXAMETHASONE [Suspect]
     Indication: PLASMA CELL MYELOMA
     Route: 065
     Dates: start: 200911, end: 20100110
  10. DEXAMETHASONE [Suspect]
     Route: 065
     Dates: start: 20100126
  11. DEXAMETHASONE [Suspect]
     Route: 065
     Dates: start: 201011, end: 201011
  12. VELCADE [Suspect]
     Indication: PLASMA CELL MYELOMA
     Dosage: 1 MILLIGRAM/SQ. METER
     Route: 041
     Dates: start: 200911
  13. VELCADE [Suspect]
     Dosage: .75 MILLIGRAM/SQ. METER
     Route: 041
     Dates: start: 200912
  14. VELCADE [Suspect]
     Dosage: 1 MILLIGRAM/SQ. METER
     Route: 041
     Dates: start: 201101, end: 201103
  15. BENDAMUSTINE [Suspect]
     Indication: PLASMA CELL MYELOMA
     Dosage: 120 MILLIGRAM/SQ. METER
     Route: 065
     Dates: start: 201103
  16. BENDAMUSTINE [Suspect]
     Dosage: 120 MILLIGRAM/SQ. METER
     Route: 065
     Dates: start: 201111

REACTIONS (1)
  - Acute myeloid leukaemia [Fatal]
